FAERS Safety Report 4508142-7 (Version None)
Quarter: 2004Q4

REPORT INFORMATION
  Report Type: 
  Country: None (occurrence: None)
  Receive Date: 20041123
  Receipt Date: 20031027
  Transmission Date: 20050328
  Serious: No
  Sender: FDA-Public Use
  Company Number: US-GLAXOSMITHKLINE-A0431817A

PATIENT
  Age: 61 Year
  Sex: Female
  Weight: 109.5 kg

DRUGS (3)
  1. WELLBUTRIN [Suspect]
     Indication: DEPRESSION
     Dosage: 150MG TWICE PER DAY
     Route: 048
  2. TOPAMAX [Suspect]
  3. PHENTERMINE [Suspect]

REACTIONS (6)
  - AGITATION [None]
  - FORMICATION [None]
  - HEPATIC ENZYME INCREASED [None]
  - INSOMNIA [None]
  - NAUSEA [None]
  - STRESS SYMPTOMS [None]
